FAERS Safety Report 9085496 (Version 2)
Quarter: 2014Q1

REPORT INFORMATION
  Report Type: Spontaneous
  Country: BD (occurrence: BD)
  Receive Date: 20130129
  Receipt Date: 20140210
  Transmission Date: 20141002
  Serious: Yes (Death)
  Sender: FDA-Public Use
  Company Number: PHHY2013BD006077

PATIENT
  Age: 97 Year
  Sex: Male

DRUGS (2)
  1. EXELON [Suspect]
     Indication: DEMENTIA
     Dosage: 1.5 MG, DAILY
     Route: 048
     Dates: start: 201108, end: 201207
  2. EXELON PATCH [Suspect]
     Indication: DEMENTIA
     Dosage: 4.6 MG/ 24HRS
     Route: 062
     Dates: start: 201208, end: 201209

REACTIONS (4)
  - Parkinson^s disease [Fatal]
  - Dysentery [Fatal]
  - Depression [Fatal]
  - Feeling abnormal [Unknown]
